FAERS Safety Report 19884236 (Version 1)
Quarter: 2021Q3

REPORT INFORMATION
  Report Type: Spontaneous
  Country: US (occurrence: US)
  Receive Date: 20210925
  Receipt Date: 20210925
  Transmission Date: 20211014
  Serious: No
  Sender: FDA-Public Use
  Company Number: None

PATIENT
  Age: 49 Year
  Sex: Female
  Weight: 56.25 kg

DRUGS (8)
  1. SCOPOLAMINE TRANSDERMAL SYSTEM [Suspect]
     Active Substance: SCOPOLAMINE
     Indication: NAUSEA
     Dosage: ?          QUANTITY:1 PATCH(ES);OTHER FREQUENCY:1 PATCH/3 DAYS;?
     Route: 062
     Dates: start: 20210918, end: 20210919
  2. NETTLE LEAF [Concomitant]
  3. VITAMIN E [Concomitant]
     Active Substance: .ALPHA.-TOCOPHEROL
  4. IBUPROFEN. [Concomitant]
     Active Substance: IBUPROFEN
  5. PROBIOTIC SUPPLEMENT [Concomitant]
  6. FIBER SUPPLEMENT [Concomitant]
     Active Substance: DIETARY SUPPLEMENT
  7. QUERCETIN [Concomitant]
     Active Substance: QUERCETIN
  8. BENADRYL [Concomitant]
     Active Substance: DIPHENHYDRAMINE HYDROCHLORIDE

REACTIONS (5)
  - Dry mouth [None]
  - Balance disorder [None]
  - Hallucination, visual [None]
  - Dizziness [None]
  - Gait inability [None]

NARRATIVE: CASE EVENT DATE: 20210919
